FAERS Safety Report 26084525 (Version 1)
Quarter: 2025Q4

REPORT INFORMATION
  Report Type: Spontaneous
  Country: US (occurrence: US)
  Receive Date: 20251124
  Receipt Date: 20251124
  Transmission Date: 20260117
  Serious: Yes (Hospitalization, Other)
  Sender: GRIFOLS
  Company Number: US-IGSA-BIG0039596

PATIENT
  Sex: Male

DRUGS (3)
  1. GAMUNEX-C [Suspect]
     Active Substance: HUMAN IMMUNOGLOBULIN G
     Indication: Chronic inflammatory demyelinating polyradiculoneuropathy
     Dosage: 40 GRAM, Q.3WK.
     Route: 042
     Dates: start: 202510
  2. GAMUNEX-C [Suspect]
     Active Substance: HUMAN IMMUNOGLOBULIN G
     Dosage: UNK, UNKNOWN
     Route: 042
  3. FEXOFENADINE HYDROCHLORIDE [Concomitant]
     Active Substance: FEXOFENADINE HYDROCHLORIDE

REACTIONS (9)
  - Headache [Unknown]
  - Dysgeusia [Unknown]
  - Escherichia infection [Unknown]
  - Dehydration [Unknown]
  - Pyrexia [Unknown]
  - Meningitis aseptic [Unknown]
  - Headache [Unknown]
  - Neck pain [Unknown]
  - Musculoskeletal stiffness [Unknown]
